FAERS Safety Report 4963292-6 (Version None)
Quarter: 2006Q2

REPORT INFORMATION
  Report Type: 
  Country: None (occurrence: None)
  Receive Date: 20060404
  Receipt Date: 20060404
  Transmission Date: 20061013
  Serious: Yes (Other)
  Sender: FDA-Public Use
  Company Number: None

PATIENT
  Age: 65 Year
  Sex: Male
  Weight: 76.4 kg

DRUGS (1)
  1. ZOSYN [Suspect]
     Indication: ANTIBIOTIC PROPHYLAXIS
     Dosage: 3.375GM    ONE TIME   IV DRIP
     Route: 041
     Dates: start: 20060329, end: 20060329

REACTIONS (2)
  - BODY TEMPERATURE INCREASED [None]
  - SWELLING FACE [None]
